FAERS Safety Report 25477889 (Version 2)
Quarter: 2025Q3

REPORT INFORMATION
  Report Type: Spontaneous
  Country: EU (occurrence: EU)
  Receive Date: 20250625
  Receipt Date: 20250708
  Transmission Date: 20251020
  Serious: Yes (Death)
  Sender: TEVA
  Company Number: None

PATIENT
  Age: 84 Year
  Sex: Female

DRUGS (18)
  1. ALLOPURINOL [Suspect]
     Active Substance: ALLOPURINOL
     Indication: Gout
     Dosage: 1 TABLET PER DAY, ALLONOL
     Route: 048
     Dates: start: 20250324
  2. TARGINIQ ER [Concomitant]
     Active Substance: NALOXONE HYDROCHLORIDE\OXYCODONE HYDROCHLORIDE
     Indication: Pain
     Dosage: 1 TABLET PER DAY
     Route: 048
     Dates: start: 20250314, end: 20250602
  3. DAPAGLIFLOZIN [Concomitant]
     Active Substance: DAPAGLIFLOZIN
     Indication: Diabetes mellitus
     Dosage: 1 TABLET PER DAY
     Route: 048
     Dates: start: 20211208, end: 20250527
  4. LACTULOSE [Concomitant]
     Active Substance: LACTULOSE
     Indication: Constipation
     Dosage: 30 ML TWICE A DAY
     Route: 048
     Dates: start: 20250430, end: 20250527
  5. CALCIUM\CHOLECALCIFEROL [Concomitant]
     Active Substance: CALCIUM\CHOLECALCIFEROL
     Indication: Osteoporosis
     Dosage: 1 TABLET PER DAY, CALCICHEW D3 FORTE MINT
     Route: 048
     Dates: start: 20241230, end: 20250527
  6. PANADOL [Concomitant]
     Active Substance: ACETAMINOPHEN
     Indication: Pain
     Dosage: 1 TABLET THREE TIMES A DAY
     Route: 048
     Dates: start: 20230503, end: 20250527
  7. METFORMIN [Concomitant]
     Active Substance: METFORMIN HYDROCHLORIDE
     Indication: Diabetes mellitus
     Dosage: 1 TABLET PER DAY
     Route: 048
     Dates: start: 20090508, end: 20250527
  8. APIXABAN [Concomitant]
     Active Substance: APIXABAN
     Indication: Thrombosis prophylaxis
     Dosage: 1 TABLET TWICE A DAY, APIXABAN ORION
     Route: 048
     Dates: start: 20250422, end: 20250527
  9. FUROSEMIDE [Concomitant]
     Active Substance: FUROSEMIDE
     Indication: Cardiac failure
     Dosage: 1 TABLET PER DAY
     Route: 048
     Dates: start: 20090203, end: 20250527
  10. Calcichew D3 Extra appelsiini [Concomitant]
     Indication: Osteoporosis
     Route: 048
     Dates: start: 20240802, end: 20250527
  11. BISOPROLOL FUMARATE [Concomitant]
     Active Substance: BISOPROLOL FUMARATE
     Indication: Hypertension
     Dosage: 1 TABLET TWICE A DAY
     Route: 048
     Dates: start: 20101129, end: 20250527
  12. PITOFENONE [Suspect]
     Active Substance: PITOFENONE
     Indication: Abdominal pain
     Route: 048
     Dates: start: 20250518, end: 20250518
  13. PITOFENONE [Suspect]
     Active Substance: PITOFENONE
     Indication: Abdominal pain
     Route: 048
     Dates: start: 20250521, end: 20250521
  14. PITOFENONE [Suspect]
     Active Substance: PITOFENONE
     Indication: Abdominal pain
     Route: 048
     Dates: start: 20250522, end: 20250522
  15. PITOFENONE [Suspect]
     Active Substance: PITOFENONE
     Indication: Abdominal pain
     Route: 048
     Dates: start: 20250519, end: 20250519
  16. PITOFENONE [Suspect]
     Active Substance: PITOFENONE
     Indication: Abdominal pain
     Route: 048
  17. PROLIA [Concomitant]
     Active Substance: DENOSUMAB
     Indication: Osteoporosis
     Dosage: INJECTION EVERY 6 MONTHS
     Route: 058
     Dates: start: 20210214, end: 20250527
  18. JANUVIA [Concomitant]
     Active Substance: SITAGLIPTIN PHOSPHATE
     Indication: Diabetes mellitus
     Dosage: 1 TABLET PER DAY
     Route: 048
     Dates: start: 20161125, end: 20250527

REACTIONS (4)
  - Agranulocytosis [Fatal]
  - Electrolyte imbalance [Fatal]
  - Pseudomonal sepsis [Fatal]
  - Oliguria [Fatal]

NARRATIVE: CASE EVENT DATE: 20250524
